FAERS Safety Report 7131358-0 (Version None)
Quarter: 2010Q4

REPORT INFORMATION
  Report Type: 
  Country: None (occurrence: None)
  Receive Date: 20101201
  Receipt Date: 20100204
  Transmission Date: 20110411
  Serious: No
  Sender: FDA-Public Use
  Company Number: US-TYCO HEALTHCARE/MALLINCKRODT-T201000600

PATIENT
  Sex: Female
  Weight: 63.039 kg

DRUGS (7)
  1. METHYLIN [Suspect]
     Dosage: 1 OR 2 4X PER DAY
     Dates: start: 20100125
  2. ARICEPT [Concomitant]
     Dosage: UNK
     Route: 048
     Dates: start: 20010101
  3. COPAXONE [Concomitant]
     Indication: MULTIPLE SCLEROSIS
     Dosage: 10 OR 20 MG - 1/DAY
     Dates: start: 20040101
  4. OXYBUTYNIN [Concomitant]
     Dosage: 2X/DAY
     Route: 048
     Dates: start: 20040101
  5. LEVETIRACETAM [Concomitant]
     Indication: CONVULSION
     Dosage: UNK
     Route: 048
     Dates: start: 20060101
  6. MULTI-VIT [Concomitant]
     Dosage: 1/DAY
     Route: 048
  7. VITAMIN A [Concomitant]
     Dosage: 1/DAY
     Route: 048

REACTIONS (5)
  - DRUG EFFECT DECREASED [None]
  - HEADACHE [None]
  - MALAISE [None]
  - NAUSEA [None]
  - RHINORRHOEA [None]
